FAERS Safety Report 5160393-7 (Version None)
Quarter: 2006Q4

REPORT INFORMATION
  Report Type: 
  Country: None (occurrence: None)
  Receive Date: 20061120
  Receipt Date: 20061110
  Transmission Date: 20070319
  Serious: Yes (Hospitalization)
  Sender: FDA-Public Use
  Company Number: 163-21880-06050250

PATIENT
  Age: 72 Year
  Sex: Male
  Weight: 68.0396 kg

DRUGS (19)
  1. REVLIMID [Suspect]
     Indication: MULTIPLE MYELOMA
     Dosage: 25 MG, DAILY, ORAL
     Route: 048
     Dates: start: 20060409
  2. DEXAMETHASONE TAB [Concomitant]
  3. ARANESP [Concomitant]
  4. DURAGESIC-100 [Concomitant]
  5. ALPHAGAN                (BRIMONIDINE TARTRATE) (DROPS) [Concomitant]
  6. ZOLOFT [Concomitant]
  7. COREG [Concomitant]
  8. ASPIRIN [Concomitant]
  9. PEPCID [Concomitant]
  10. INSPRA [Concomitant]
  11. LANOXIN [Concomitant]
  12. COSOPT                                 (COSOPT) (DROPS) [Concomitant]
  13. ANTIBIOTICS                      (ANTIBIOTICS) [Concomitant]
  14. DIGOXIN [Concomitant]
  15. CLARITIN [Concomitant]
  16. MULTIVITAMIN [Concomitant]
  17. SENOKOT [Concomitant]
  18. VICODIN [Concomitant]
  19. ATIVAN [Concomitant]

REACTIONS (7)
  - CATHETER SITE ERYTHEMA [None]
  - CELLULITIS [None]
  - FATIGUE [None]
  - HYPERHIDROSIS [None]
  - NEUTROPENIA [None]
  - OSTEOMYELITIS [None]
  - PYREXIA [None]
